FAERS Safety Report 25914329 (Version 1)
Quarter: 2025Q4

REPORT INFORMATION
  Report Type: Spontaneous
  Country: US (occurrence: US)
  Receive Date: 20251013
  Receipt Date: 20251013
  Transmission Date: 20260118
  Serious: No
  Sender: BAYER HEALTHCARE PHARMACEUTICALS INC.
  Company Number: US-BAYER-2025A134230

PATIENT
  Sex: Male

DRUGS (1)
  1. CIPRO [Suspect]
     Active Substance: CIPROFLOXACIN HYDROCHLORIDE
     Dosage: 100 MG, BID
     Route: 048
     Dates: start: 202510

REACTIONS (2)
  - Chest pain [None]
  - Musculoskeletal pain [None]

NARRATIVE: CASE EVENT DATE: 20251001
